FAERS Safety Report 14401961 (Version 3)
Quarter: 2018Q1

REPORT INFORMATION
  Report Type: Spontaneous
  Country: US (occurrence: US)
  Receive Date: 20180117
  Receipt Date: 20180212
  Transmission Date: 20180509
  Serious: Yes (Death)
  Sender: FDA-Public Use
  Company Number: US-PFIZER INC-2018015939

PATIENT
  Age: 25 Year
  Sex: Female

DRUGS (1)
  1. SULFAMETHOXAZOLE/TRIMETHOPRIM [Suspect]
     Active Substance: SULFAMETHOXAZOLE\TRIMETHOPRIM
     Indication: SOFT TISSUE INFECTION
     Dosage: UNK

REACTIONS (7)
  - Hepatotoxicity [None]
  - Hepatic necrosis [Fatal]
  - Hepatic failure [Fatal]
  - Haemodynamic instability [None]
  - Acute kidney injury [None]
  - Hepatitis acute [None]
  - Haemorrhage [None]
